FAERS Safety Report 4311442-7 (Version None)
Quarter: 2004Q1

REPORT INFORMATION
  Report Type: 
  Country: None (occurrence: None)
  Receive Date: 20040303
  Receipt Date: 20040303
  Transmission Date: 20041129
  Serious: Yes (Hospitalization)
  Sender: FDA-Public Use
  Company Number: None

PATIENT
  Age: 41 Year
  Sex: Female
  Weight: 77.1115 kg

DRUGS (2)
  1. CISPLATIN [Suspect]
     Indication: CERVIX CARCINOMA
     Dosage: Q 7 1 DAY IV 142 MG
     Route: 042
     Dates: start: 20040126
  2. FLUOROURACIL [Suspect]
     Indication: CERVIX CARCINOMA
     Dosage: 7600 MG IV OVER 4 D
     Route: 042
     Dates: start: 20040126, end: 20040129

REACTIONS (3)
  - BLOOD MAGNESIUM DECREASED [None]
  - CLOSTRIDIUM COLITIS [None]
  - DIARRHOEA [None]
